FAERS Safety Report 7729977-3 (Version None)
Quarter: 2011Q3

REPORT INFORMATION
  Report Type: 
  Country: None (occurrence: None)
  Receive Date: 20110906
  Receipt Date: 20110823
  Transmission Date: 20111222
  Serious: Yes (Other)
  Sender: FDA-Public Use
  Company Number: PHEH2011US02381

PATIENT
  Age: 66 Year
  Sex: Female

DRUGS (10)
  1. FLUOXETINE HCL [Suspect]
     Dosage: 40 MG, QD
  2. ESTRACE [Concomitant]
     Dosage: UNK UKN, UNK
  3. PLAQUIN [Concomitant]
     Dosage: UNK UKN, UNK
  4. SIMVASTATIN [Concomitant]
     Dosage: UNK UKN, UNK
  5. EXELON [Suspect]
     Indication: LUPUS ENTERITIS
     Dosage: 4.6 MG, 1 PATCH PER DAY
     Route: 062
  6. TEKTURNA [Concomitant]
     Dosage: UNK UKN, UNK
  7. MOTRIN [Concomitant]
     Dosage: 800 MG, UNK
  8. TENORMIN [Concomitant]
     Dosage: UNK UKN, UNK
  9. NASONEX [Concomitant]
  10. ASPIRIN [Concomitant]
     Dosage: 81 MG, UNK

REACTIONS (5)
  - FEELING ABNORMAL [None]
  - BALANCE DISORDER [None]
  - ASTHENIA [None]
  - TRANSIENT ISCHAEMIC ATTACK [None]
  - LOSS OF CONSCIOUSNESS [None]
